FAERS Safety Report 24943367 (Version 1)
Quarter: 2025Q1

REPORT INFORMATION
  Report Type: Spontaneous
  Country: US (occurrence: None)
  Receive Date: 20250207
  Receipt Date: 20250207
  Transmission Date: 20250409
  Serious: No
  Sender: FDA-CTU
  Company Number: None

PATIENT
  Sex: Female

DRUGS (1)
  1. STELARA [Suspect]
     Active Substance: USTEKINUMAB
     Dosage: OTHER STRENGTH : 90MG/1ML;?FREQUENCY : MONTHLY;?
     Route: 042
     Dates: start: 202501

REACTIONS (2)
  - Intestinal obstruction [None]
  - Therapeutic product effect incomplete [None]
